FAERS Safety Report 10879357 (Version 6)
Quarter: 2015Q2

REPORT INFORMATION
  Report Type: Spontaneous
  Country: JP (occurrence: JP)
  Receive Date: 20150302
  Receipt Date: 20150615
  Transmission Date: 20150821
  Serious: Yes (Life-Threatening, Hospitalization, Other)
  Sender: FDA-Public Use
  Company Number: JP-GLAXOSMITHKLINE-JP2015JPN023624

PATIENT
  Age: 39 Year
  Sex: Male
  Weight: 77 kg

DRUGS (11)
  1. CLOZARIL [Suspect]
     Active Substance: CLOZAPINE
     Dosage: 550 MG, 1D
     Route: 048
  2. LEUCON (JAPAN) [Concomitant]
     Dosage: 40 MG, 1D
  3. HIBERNA [Concomitant]
     Active Substance: PROMETHAZINE HYDROCHLORIDE
     Dosage: 25 MG, 1D
  4. MIDAZOLAM [Concomitant]
     Active Substance: MIDAZOLAM\MIDAZOLAM HYDROCHLORIDE
     Indication: SEDATION
     Dosage: UNK UNK, CO
  5. LITHIUM CARBONATE. [Concomitant]
     Active Substance: LITHIUM CARBONATE
     Dosage: 400 MG, 1D
  6. PIRENZEPINE HYDROCHLORIDE HYDRATE [Concomitant]
     Dosage: 75 MG, 1D
  7. NELBON [Concomitant]
     Active Substance: NITRAZEPAM
     Dosage: 10 MG, 1D
  8. ROZEREM [Concomitant]
     Active Substance: RAMELTEON
     Dosage: 8 MG, 1D
  9. LAMICTAL [Suspect]
     Active Substance: LAMOTRIGINE
     Indication: MOOD SWINGS
     Dosage: 50 MG, QD
     Route: 048
     Dates: start: 20140523, end: 20140617
  10. AMOBANTES [Concomitant]
     Dosage: 10 MG, 1D
  11. MAGLAX [Concomitant]
     Active Substance: MAGNESIUM OXIDE
     Dosage: 1320 MG, 1D

REACTIONS (8)
  - Eosinophil count increased [Recovered/Resolved]
  - Enanthema [Unknown]
  - White blood cell count decreased [Unknown]
  - Hypoxia [Unknown]
  - Sputum retention [Unknown]
  - Neutropenia [Recovered/Resolved]
  - Eosinophilia [Recovered/Resolved with Sequelae]
  - Drug eruption [Recovered/Resolved]

NARRATIVE: CASE EVENT DATE: 20140605
